FAERS Safety Report 8571272-7 (Version None)
Quarter: 2012Q3

REPORT INFORMATION
  Report Type: 
  Country: None (occurrence: None)
  Receive Date: 20120806
  Receipt Date: 20120726
  Transmission Date: 20120928
  Serious: Yes (Hospitalization)
  Sender: FDA-Public Use
  Company Number: US-GENZYME-POMP-1002293

PATIENT
  Sex: Female
  Weight: 50.5 kg

DRUGS (5)
  1. MYOZYME [Concomitant]
     Indication: FABRY'S DISEASE
     Dosage: UNK
     Route: 042
     Dates: start: 20090505
  2. LUMIZYME [Suspect]
     Indication: GLYCOGEN STORAGE DISEASE TYPE II
     Dosage: 1000 MG, Q2W
     Route: 042
  3. IBUPROFEN [Concomitant]
     Indication: PREMEDICATION
     Dosage: 400 MG, 1 HOUR BEFORE INFUSION
     Dates: start: 20090505
  4. DIPHENHYDRAMINE HCL [Concomitant]
     Indication: PREMEDICATION
     Dosage: 25 MG, 1 HOUR PRIOR TO INFUSION
     Route: 048
     Dates: start: 20090505
  5. MULTI-VITAMIN [Concomitant]
     Indication: PRODUCT USED FOR UNKNOWN INDICATION
     Dosage: 1 UNK, QD
     Route: 048

REACTIONS (6)
  - NAUSEA [None]
  - PARAESTHESIA [None]
  - DIZZINESS [None]
  - ABDOMINAL PAIN [None]
  - SERUM SICKNESS [None]
  - PAIN [None]
